FAERS Safety Report 8782327 (Version 1)
Quarter: 2012Q4

REPORT INFORMATION
  Report Type: 
  Country: DE (occurrence: DE)
  Receive Date: 20120913
  Receipt Date: 20120913
  Transmission Date: 20130627
  Serious: Yes (Life-Threatening, Hospitalization)
  Sender: FDA-Public Use
  Company Number: DE-TEVA-357069GER

PATIENT
  Age: 57 Year
  Sex: Female

DRUGS (21)
  1. L-THYROXIN [Suspect]
     Dosage: 100 Milligram Daily;
     Route: 048
     Dates: start: 20111117
  2. DIAZEPAM [Suspect]
     Dosage: 25 Milligram Daily;
     Route: 048
     Dates: start: 20111012, end: 20111122
  3. DIAZEPAM [Suspect]
     Dosage: 20 Milligram Daily;
     Route: 048
     Dates: start: 20111123, end: 20111125
  4. DIAZEPAM [Suspect]
     Dosage: 15 Milligram Daily;
     Route: 048
     Dates: start: 20111126, end: 20111129
  5. CLOZAPINE [Suspect]
     Dosage: 12.5 Milligram Daily;
     Route: 048
     Dates: start: 20111118, end: 20111119
  6. CLOZAPINE [Suspect]
     Dosage: 25 Milligram Daily;
     Route: 048
     Dates: start: 20111120, end: 20111121
  7. CLOZAPINE [Suspect]
     Dosage: 50 Milligram Daily;
     Route: 048
     Dates: start: 20111122, end: 20111123
  8. CLOZAPINE [Suspect]
     Dosage: 75 Milligram Daily;
     Route: 048
     Dates: start: 20111124, end: 20111125
  9. CLOZAPINE [Suspect]
     Dosage: 100 Milligram Daily;
     Route: 048
     Dates: start: 20111126, end: 20111127
  10. CLOZAPINE [Suspect]
     Dosage: 150 Milligram Daily;
     Route: 048
     Dates: start: 20111127, end: 20111129
  11. NEUROCIL [Suspect]
     Dosage: 50 Milligram Daily;
     Route: 048
     Dates: start: 20111108, end: 20111116
  12. NEUROCIL [Suspect]
     Dosage: 100 Milligram Daily;
     Route: 048
     Dates: start: 20111117
  13. ORFIRIL [Suspect]
     Dosage: 500 Milligram Daily;
     Route: 048
     Dates: start: 20111017, end: 20111101
  14. ORFIRIL [Suspect]
     Dosage: 1000 Milligram Daily;
     Route: 048
     Dates: start: 20111102, end: 20111125
  15. ORFIRIL [Suspect]
     Dosage: 1500 Milligram Daily;
     Route: 048
     Dates: start: 20111126, end: 20111129
  16. ABILIFY [Suspect]
     Route: 048
     Dates: start: 20111011, end: 20111012
  17. ABILIFY [Suspect]
     Dosage: 30 Milligram Daily;
     Route: 048
     Dates: start: 20111013, end: 20111129
  18. HALDOL DECANOATE [Suspect]
     Route: 030
     Dates: start: 20111125
  19. BISOPROLOL [Concomitant]
     Dosage: 2.5 Milligram Daily;
     Route: 048
     Dates: start: 2009
  20. LASIX [Concomitant]
     Dosage: 120 Milligram Daily;
     Route: 048
     Dates: start: 2009
  21. CLEXANE [Concomitant]
     Dosage: 40 Milligram Daily;
     Route: 048
     Dates: start: 20111124

REACTIONS (2)
  - Pneumonia [Not Recovered/Not Resolved]
  - Obstructive airways disorder [None]
